APPROVED DRUG PRODUCT: AMINOPHYLLINE
Active Ingredient: AMINOPHYLLINE
Strength: 105MG/5ML
Dosage Form/Route: SOLUTION;ORAL
Application: A088156 | Product #001
Applicant: MORTON GROVE PHARMACEUTICALS INC
Approved: Dec 5, 1983 | RLD: No | RS: No | Type: DISCN